FAERS Safety Report 11485021 (Version 3)
Quarter: 2015Q3

REPORT INFORMATION
  Report Type: Spontaneous
  Country: US (occurrence: US)
  Receive Date: 20150903
  Receipt Date: 20150916
  Transmission Date: 20151125
  Serious: No
  Sender: FDA-Public Use
  Company Number: US-ELI_LILLY_AND_COMPANY-US200804003784

PATIENT
  Sex: Female

DRUGS (4)
  1. HUMALOG [Suspect]
     Active Substance: INSULIN LISPRO
  2. FORTEO [Suspect]
     Active Substance: TERIPARATIDE
     Dates: start: 20080407
  3. HUMALOG [Suspect]
     Active Substance: INSULIN LISPRO
  4. INSULIN [Concomitant]
     Active Substance: INSULIN NOS
     Dates: start: 1955

REACTIONS (5)
  - Blood calcium increased [Unknown]
  - Blood glucose increased [Recovered/Resolved]
  - Drug ineffective [Unknown]
  - Visual acuity reduced [Not Recovered/Not Resolved]
  - Blood glucose increased [Unknown]

NARRATIVE: CASE EVENT DATE: 2003
